FAERS Safety Report 8884312 (Version 1)
Quarter: 2012Q4

REPORT INFORMATION
  Report Type: 
  Country: US (occurrence: US)
  Receive Date: 20121104
  Receipt Date: 20121104
  Transmission Date: 20130627
  Serious: No
  Sender: FDA-Public Use
  Company Number: US-ASTRAZENECA-2012SE81290

PATIENT
  Age: 24 Year
  Sex: Female

DRUGS (2)
  1. PULMICORT FLEXHALER [Suspect]
     Route: 055
  2. RHINOCORT AQUA [Suspect]
     Route: 045

REACTIONS (3)
  - Malaise [Unknown]
  - Sinusitis [Unknown]
  - Drug dose omission [Unknown]
